FAERS Safety Report 22288462 (Version 1)
Quarter: 2023Q2

REPORT INFORMATION
  Report Type: Spontaneous
  Country: GB (occurrence: GB)
  Receive Date: 20230505
  Receipt Date: 20230505
  Transmission Date: 20230721
  Serious: Yes (Other)
  Sender: FDA-Public Use
  Company Number: None

PATIENT
  Age: 65 Year
  Sex: Female
  Weight: 70 kg

DRUGS (11)
  1. DOXYCYCLINE [Suspect]
     Active Substance: DOXYCYCLINE
     Indication: Product used for unknown indication
     Dosage: TWO CAPSULES TO BE TAKEN IMMEDIATELY THEN ONE...DURATION : 7 DAYS
     Route: 065
     Dates: start: 20230404, end: 20230411
  2. AMLODIPINE [Concomitant]
     Active Substance: AMLODIPINE BESYLATE
     Indication: Product used for unknown indication
     Dosage: 1 DOSAGE FORMS DAILY; 1 DF, OD
     Dates: start: 20220325
  3. LEVOTHYROXINE [Concomitant]
     Active Substance: LEVOTHYROXINE
     Indication: Product used for unknown indication
     Dosage: 1 DOSAGE FORMS DAILY; 1 DF, OD
     Dates: start: 20220325
  4. LOSARTAN [Concomitant]
     Active Substance: LOSARTAN
     Indication: Hypertension
     Dosage: 1 DOSAGE FORMS DAILY; EVERY MORNING, 1 DF, OD
     Dates: start: 20220325
  5. NAPROXEN [Concomitant]
     Active Substance: NAPROXEN
     Indication: Pain
     Dosage: 2 DOSAGE FORMS DAILY; TWICE A DAY, 1 DF
     Dates: start: 20220325
  6. ESTRADIOL [Concomitant]
     Active Substance: ESTRADIOL
     Indication: Product used for unknown indication
     Dosage: 2 DOSAGE FORMS DAILY; PUMP ACTUATIONS APPLICATION, 2 DF, OD
     Dates: start: 20230125
  7. OMEPRAZOLE [Concomitant]
     Active Substance: OMEPRAZOLE
     Indication: Gastric pH decreased
     Dosage: 1 DOSAGE FORMS DAILY; 1 DF, OD
     Dates: start: 20220325
  8. PROGESTERONE [Concomitant]
     Active Substance: PROGESTERONE
     Indication: Product used for unknown indication
     Dosage: 1 DOSAGE FORMS DAILY; 1 DF, OD
     Dates: start: 20230125
  9. FLUTICASONE FUROATE\VILANTEROL TRIFENATATE [Concomitant]
     Active Substance: FLUTICASONE FUROATE\VILANTEROL TRIFENATATE
     Indication: Product used for unknown indication
     Dosage: 1 DOSAGE FORMS DAILY; AS DIRECTED, 1 DF, OD
     Route: 055
     Dates: start: 20220826
  10. ALBUTEROL [Concomitant]
     Active Substance: ALBUTEROL
     Indication: Product used for unknown indication
     Dosage: 2 DF
     Route: 055
     Dates: start: 20220826
  11. NORETHINDRONE [Concomitant]
     Active Substance: NORETHINDRONE
     Indication: Product used for unknown indication
     Dosage: 3 DOSAGE FORMS DAILY; FOR 10 DAYS, 1 DF, 3 TIMES A DAY, DURATION : 14 DAYS
     Dates: start: 20230203, end: 20230217

REACTIONS (2)
  - Visual impairment [Recovered/Resolved]
  - Dysphagia [Recovered/Resolved]
